FAERS Safety Report 5953802-4 (Version None)
Quarter: 2008Q4

REPORT INFORMATION
  Report Type: 
  Country: None (occurrence: None)
  Receive Date: 20081114
  Receipt Date: 20081107
  Transmission Date: 20090506
  Serious: Yes (Death)
  Sender: FDA-Public Use
  Company Number: US-GENENTECH-269148

PATIENT
  Age: 46 Year
  Sex: Male

DRUGS (5)
  1. RITUXAN [Suspect]
     Indication: LYMPHOCYTIC LYMPHOMA
     Dosage: 668 MG, 1/WEEK
     Dates: start: 20000710, end: 20000802
  2. RITUXAN [Suspect]
     Dosage: 440 MG, 1/WEEK
     Dates: start: 20001213, end: 20001220
  3. IL-12 [Concomitant]
     Indication: LYMPHOCYTIC LYMPHOMA
     Dosage: UNK
     Dates: start: 20000712, end: 20001008
  4. DHAP [Concomitant]
     Indication: LYMPHOCYTIC LYMPHOMA
     Dosage: UNK
     Dates: start: 20001023
  5. ZEVALIN [Concomitant]
     Indication: LYMPHOCYTIC LYMPHOMA
     Dosage: UNK
     Dates: start: 20001213

REACTIONS (1)
  - PROGRESSIVE MULTIFOCAL LEUKOENCEPHALOPATHY [None]
